FAERS Safety Report 7275409-1 (Version None)
Quarter: 2011Q1

REPORT INFORMATION
  Report Type: 
  Country: None (occurrence: None)
  Receive Date: 20110202
  Receipt Date: 20110202
  Transmission Date: 20110831
  Serious: Yes (Other)
  Sender: FDA-Public Use
  Company Number: None

PATIENT
  Sex: Male
  Weight: 40.3701 kg

DRUGS (1)
  1. PREDNISONE TAB [Suspect]
     Indication: COUGH
     Dosage: 20 MG BID PO
     Route: 048

REACTIONS (6)
  - FAECAL INCONTINENCE [None]
  - MEDICATION ERROR [None]
  - DRUG DISPENSING ERROR [None]
  - ENURESIS [None]
  - POLLAKIURIA [None]
  - URINARY INCONTINENCE [None]
